FAERS Safety Report 5581331-9 (Version None)
Quarter: 2008Q1

REPORT INFORMATION
  Report Type: 
  Country: None (occurrence: None)
  Receive Date: 20080104
  Receipt Date: 20071226
  Transmission Date: 20080703
  Serious: Yes (Other)
  Sender: FDA-Public Use
  Company Number: PHEH2007US16183

PATIENT
  Age: 50 Year
  Sex: Female
  Weight: 108 kg

DRUGS (1)
  1. ZELNORM [Suspect]
     Dates: start: 20020101, end: 20070301

REACTIONS (2)
  - ARTERIAL OCCLUSIVE DISEASE [None]
  - DYSPNOEA [None]
